FAERS Safety Report 7982327-X (Version None)
Quarter: 2011Q4

REPORT INFORMATION
  Report Type: 
  Country: None (occurrence: None)
  Receive Date: 20111215
  Receipt Date: 20111201
  Transmission Date: 20120403
  Serious: Yes (Other)
  Sender: FDA-Public Use
  Company Number: PHHY2011IT108584

PATIENT
  Age: 41 Year
  Sex: Male

DRUGS (1)
  1. LETROZOLE [Suspect]
     Indication: SPERMATOGENESIS ABNORMAL
     Dosage: 2.5 MG, PER DAY

REACTIONS (1)
  - LOSS OF LIBIDO [None]
